FAERS Safety Report 9900332 (Version 1)
Quarter: 2014Q1

REPORT INFORMATION
  Report Type: Report from Study
  Country: US (occurrence: US)
  Receive Date: 20140216
  Receipt Date: 20140216
  Transmission Date: 20141002
  Serious: Yes (Hospitalization)
  Sender: FDA-Public Use
  Company Number: US-ROCHE-1328126

PATIENT
  Age: 60 Year
  Sex: Female
  Weight: 64.01 kg

DRUGS (31)
  1. AVASTIN [Suspect]
     Indication: NON-SMALL CELL LUNG CANCER
     Route: 042
     Dates: start: 20111006
  2. TARCEVA [Suspect]
     Indication: PRODUCT USED FOR UNKNOWN INDICATION
     Route: 048
     Dates: start: 20110415
  3. KYTRIL [Suspect]
     Indication: PRODUCT USED FOR UNKNOWN INDICATION
     Route: 042
  4. DOCUSATE SODIUM [Concomitant]
     Route: 048
  5. DEXAMETHASONE SODIUM PHOSPHATE [Concomitant]
     Route: 042
  6. ALIMTA [Concomitant]
     Route: 065
     Dates: start: 20111006, end: 20111228
  7. ARQ 197 [Concomitant]
  8. COLACE [Concomitant]
  9. FOLIC ACID [Concomitant]
  10. LEVOTHYROXINE [Concomitant]
  11. LISINOPRIL [Concomitant]
  12. MORPHINE SULFATE [Concomitant]
  13. OMEPRAZOLE [Concomitant]
  14. AVELOX [Concomitant]
  15. PREDNISONE [Concomitant]
  16. SPIRIVA [Concomitant]
  17. ALBUTEROL [Concomitant]
  18. AMLODIPINE [Concomitant]
     Route: 048
  19. BACTRIM DS [Concomitant]
     Route: 048
  20. CYCLOBENZAPRINE HCL [Concomitant]
     Route: 048
  21. AZITHROMYCIN [Concomitant]
     Route: 048
  22. AUGMENTIN [Concomitant]
     Route: 048
  23. LACTULOSE [Concomitant]
     Indication: CONSTIPATION
     Dosage: 10GM IN 15ML, 15MLS AS DIRECTED
     Route: 048
  24. PROTONIX (OMEPRAZOLE) [Concomitant]
     Route: 048
  25. SINGULAIR [Concomitant]
     Route: 048
  26. SYMBICORT [Concomitant]
     Dosage: TAKE 1 INHALATION AS DIRECTED
     Route: 065
  27. ASPIRIN [Concomitant]
     Route: 048
  28. VICODIN [Concomitant]
     Indication: PAIN
     Route: 048
  29. ZOFRAN [Concomitant]
     Indication: NAUSEA
     Dosage: PRN
     Route: 048
  30. BACTRIM DS [Concomitant]
  31. OXYGEN [Concomitant]

REACTIONS (13)
  - Dyspnoea [Unknown]
  - Fatigue [Unknown]
  - Dehydration [Unknown]
  - Gastrooesophageal reflux disease [Unknown]
  - Nausea [Unknown]
  - Obstructive airways disorder [Unknown]
  - Fibromyalgia [Unknown]
  - Thyroid disorder [Unknown]
  - Disease progression [Unknown]
  - Hypotension [Unknown]
  - Chest pain [Unknown]
  - Anaemia [Unknown]
  - Breath sounds abnormal [Unknown]
